FAERS Safety Report 9932581 (Version 1)
Quarter: 2014Q1

REPORT INFORMATION
  Report Type: Spontaneous
  Country: US (occurrence: US)
  Receive Date: 20140228
  Receipt Date: 20140228
  Transmission Date: 20141002
  Serious: No
  Sender: FDA-Public Use
  Company Number: US-GLAXOSMITHKLINE-A1011286A

PATIENT
  Age: 18 Year
  Sex: Female

DRUGS (1)
  1. SUMATRIPTAN [Suspect]
     Indication: PRODUCT USED FOR UNKNOWN INDICATION

REACTIONS (3)
  - Throat irritation [Recovered/Resolved]
  - Rash [Unknown]
  - Headache [Unknown]
